FAERS Safety Report 5224572-2 (Version None)
Quarter: 2007Q1

REPORT INFORMATION
  Report Type: 
  Country: None (occurrence: None)
  Receive Date: 20070126
  Receipt Date: 20070117
  Transmission Date: 20070707
  Serious: Yes (Disabling, Other)
  Sender: FDA-Public Use
  Company Number: OSCN-PR-0609S-0263

PATIENT
  Sex: Male
  Weight: 67 kg

DRUGS (1)
  1. OMNISCAN [Suspect]
     Indication: RENAL MASS
     Dosage: 16 ML, SINGLE DOSE, I.V.
     Route: 042

REACTIONS (4)
  - BLOOD CREATININE INCREASED [None]
  - GAIT DISTURBANCE [None]
  - HAEMODIALYSIS [None]
  - NEPHROGENIC FIBROSING DERMOPATHY [None]
